FAERS Safety Report 4741689-7 (Version None)
Quarter: 2005Q3

REPORT INFORMATION
  Report Type: 
  Country: None (occurrence: None)
  Receive Date: 20050801
  Receipt Date: 20050623
  Transmission Date: 20060218
  Serious: No
  Sender: FDA-Public Use
  Company Number: 2005PV000109

PATIENT
  Age: 68 Year
  Sex: Male
  Weight: 102.5129 kg

DRUGS (9)
  1. BYETTA [Suspect]
     Indication: DIABETES MELLITUS NON-INSULIN-DEPENDENT
     Dosage: 5 UG; BID; SC
     Route: 058
     Dates: start: 20050614
  2. NOVOLOG [Concomitant]
  3. NORVASC [Concomitant]
  4. LIPITOR [Concomitant]
  5. SYNTHROID [Concomitant]
  6. LEXAPRO [Concomitant]
  7. AMBIEN [Concomitant]
  8. CHLOR-TRIMETON [Concomitant]
  9. NITROGLYCERIN [Concomitant]

REACTIONS (6)
  - COLD SWEAT [None]
  - HOT FLUSH [None]
  - HYPOAESTHESIA [None]
  - NAUSEA [None]
  - NON-CARDIAC CHEST PAIN [None]
  - PARAESTHESIA [None]
